FAERS Safety Report 6867966-1 (Version None)
Quarter: 2010Q3

REPORT INFORMATION
  Report Type: 
  Country: None (occurrence: None)
  Receive Date: 20100722
  Receipt Date: 20080508
  Transmission Date: 20110219
  Serious: No
  Sender: FDA-Public Use
  Company Number: US-PFIZER INC-2008041084

PATIENT
  Sex: Female
  Weight: 65.5 kg

DRUGS (7)
  1. CHANTIX [Suspect]
     Indication: SMOKING CESSATION THERAPY
     Dates: start: 20071215
  2. LIPITOR [Concomitant]
  3. CARVEDILOL [Concomitant]
  4. PREVACID [Concomitant]
  5. ACETYLSALICYLIC ACID [Concomitant]
  6. GLUCOTROL [Concomitant]
  7. SPIRIVA [Concomitant]
     Route: 055

REACTIONS (1)
  - ABDOMINAL DISCOMFORT [None]
